FAERS Safety Report 9862075 (Version 1)
Quarter: 2014Q1

REPORT INFORMATION
  Report Type: Spontaneous
  Country: US (occurrence: None)
  Receive Date: 20140131
  Receipt Date: 20140131
  Transmission Date: 20141002
  Serious: No
  Sender: FDA-Public Use
  Company Number: None

PATIENT
  Age: 78 Year
  Sex: Male
  Weight: 80.9 kg

DRUGS (2)
  1. ASPIRIN [Suspect]
     Indication: LEUKAEMIA
     Dosage: MG PO
     Route: 048
     Dates: start: 20130822, end: 20131002
  2. MELOXICAM [Suspect]
     Dosage: MG PO
     Route: 048
     Dates: start: 20130127, end: 20130322

REACTIONS (2)
  - Haemorrhage [None]
  - Thrombocytopenia [None]
